FAERS Safety Report 8802261 (Version 2)
Quarter: 2012Q4

REPORT INFORMATION
  Report Type: 
  Country: US (occurrence: US)
  Receive Date: 20120921
  Receipt Date: 20121005
  Transmission Date: 20130627
  Serious: Yes (Death)
  Sender: FDA-Public Use
  Company Number: US-US-EMD SERONO, INC.-7162153

PATIENT
  Age: 61 Year
  Sex: Male
  Weight: 46 kg

DRUGS (8)
  1. SEROSTIM [(SOMATROPIN (RDNA ORIGIN) FOR INJECTION)] [Suspect]
     Indication: HIV WASTING SYNDROME
     Route: 058
     Dates: start: 201202
  2. INTELENCE [Concomitant]
     Indication: HIV INFECTION
     Route: 048
     Dates: start: 20110222, end: 20120426
  3. ISENTRESS [Concomitant]
     Indication: HIV INFECTION
     Route: 048
     Dates: start: 20110222
  4. PREZISTA [Concomitant]
     Indication: HIV INFECTION
     Route: 048
     Dates: start: 20110222
  5. NORVIR [Concomitant]
     Indication: HIV INFECTION
     Dates: start: 20110222
  6. LOPRESSOR [Concomitant]
     Indication: HYPERTENSION
     Route: 048
     Dates: start: 20110222
  7. DAPSONE [Concomitant]
     Indication: HIV INFECTION
     Route: 048
     Dates: start: 20110222
  8. DURAGESIC [Concomitant]
     Indication: PAIN
     Route: 062
     Dates: start: 20120324

REACTIONS (3)
  - Cerebrovascular accident [Fatal]
  - Myocardial infarction [Fatal]
  - Drowning [Fatal]
